FAERS Safety Report 7907048-0 (Version None)
Quarter: 2011Q4

REPORT INFORMATION
  Report Type: 
  Country: None (occurrence: None)
  Receive Date: 20111110
  Receipt Date: 20111029
  Transmission Date: 20120403
  Serious: No
  Sender: FDA-Public Use
  Company Number: US-B.I. PHARMACEUTICALS,INC./RIDGEFIELD-2011-BP-25306BP

PATIENT
  Sex: Female

DRUGS (9)
  1. FISH OIL [Concomitant]
     Indication: SUPPLEMENTATION THERAPY
  2. BIOTENE [Concomitant]
     Indication: SUPPLEMENTATION THERAPY
  3. SYNTHROID [Concomitant]
     Indication: HYPOTHYROIDISM
  4. PRADAXA [Suspect]
     Indication: CEREBROVASCULAR ACCIDENT PROPHYLAXIS
     Dosage: 300 MG
     Route: 048
     Dates: start: 20110901, end: 20111027
  5. CALCIUM [Concomitant]
     Indication: SUPPLEMENTATION THERAPY
  6. MAGNESIUM [Concomitant]
     Indication: SUPPLEMENTATION THERAPY
  7. VITAMIN B-12 [Concomitant]
     Indication: SUPPLEMENTATION THERAPY
  8. CARDURA [Concomitant]
     Indication: HYPERTENSION
  9. MULTI-VITAMINS [Concomitant]
     Indication: SUPPLEMENTATION THERAPY

REACTIONS (7)
  - DRY MOUTH [None]
  - DECREASED APPETITE [None]
  - DRY SKIN [None]
  - ASTHENIA [None]
  - LIMB DISCOMFORT [None]
  - THIRST [None]
  - DYSGEUSIA [None]
